FAERS Safety Report 5634926-8 (Version None)
Quarter: 2008Q1

REPORT INFORMATION
  Report Type: 
  Country: None (occurrence: None)
  Receive Date: 20080131
  Receipt Date: 20071121
  Transmission Date: 20080703
  Serious: No
  Sender: FDA-Public Use
  Company Number: 2007-US-000276

PATIENT
  Age: 8 Year
  Sex: Male
  Weight: 21.3 kg

DRUGS (3)
  1. INCRELEX [Suspect]
     Indication: BODY HEIGHT BELOW NORMAL
     Dosage: 16, 18, 26  UT, BID, SUBCUTANEOUS
     Route: 058
     Dates: start: 20070818, end: 20071021
  2. INCRELEX [Suspect]
     Indication: BODY HEIGHT BELOW NORMAL
     Dosage: 16, 18, 26  UT, BID, SUBCUTANEOUS
     Route: 058
     Dates: start: 20071022, end: 20071118
  3. INCRELEX [Suspect]
     Indication: BODY HEIGHT BELOW NORMAL
     Dosage: 16, 18, 26  UT, BID, SUBCUTANEOUS
     Route: 058
     Dates: start: 20071119

REACTIONS (5)
  - INJECTION SITE BRUISING [None]
  - INJECTION SITE HAEMORRHAGE [None]
  - INJECTION SITE IRRITATION [None]
  - INJECTION SITE PRURITUS [None]
  - INJECTION SITE VESICLES [None]
